FAERS Safety Report 6490910 (Version 5)
Quarter: 2014Q1

REPORT INFORMATION
  Report Type: Spontaneous
  Country: US (occurrence: US)
  Receive Date: 20071211
  Receipt Date: 20140228
  Transmission Date: 20141002
  Serious: Yes (Hospitalization)
  Sender: FDA-Public Use
  Company Number: US-ASTRAZENECA-2007UW26052

PATIENT
  Age: 77 Year
  Sex: Female
  Weight: 27.2 kg

DRUGS (25)
  1. SYMBICORT [Suspect]
     Indication: ASTHMA
     Dosage: 80/4.5 MCG ONE FUFF BID
     Route: 055
     Dates: start: 200707
  2. SYMBICORT [Interacting]
     Indication: CHRONIC OBSTRUCTIVE PULMONARY DISEASE
     Dosage: 80/4.5 MCG ONE FUFF BID
     Route: 055
     Dates: start: 200707
  3. SYMBICORT [Interacting]
     Indication: ASTHMA
     Dosage: 160/4.5 MCG TWO FUFFS BID
     Route: 055
     Dates: start: 2008, end: 2009
  4. SYMBICORT [Interacting]
     Indication: CHRONIC OBSTRUCTIVE PULMONARY DISEASE
     Dosage: 160/4.5 MCG TWO FUFFS BID
     Route: 055
     Dates: start: 2008, end: 2009
  5. SYMBICORT [Interacting]
     Indication: ASTHMA
     Dosage: 80/4.5 MCG TWO FUFFS BID
     Route: 055
     Dates: start: 2009
  6. SYMBICORT [Interacting]
     Indication: CHRONIC OBSTRUCTIVE PULMONARY DISEASE
     Dosage: 80/4.5 MCG TWO FUFFS BID
     Route: 055
     Dates: start: 2009
  7. SYMBICORT [Interacting]
     Indication: ASTHMA
     Dosage: TWO PUFFS TWO TIMES A DAY
     Route: 055
     Dates: start: 201007
  8. SYMBICORT [Interacting]
     Indication: CHRONIC OBSTRUCTIVE PULMONARY DISEASE
     Dosage: TWO PUFFS TWO TIMES A DAY
     Route: 055
     Dates: start: 201007
  9. SYMBICORT [Interacting]
     Indication: ASTHMA
     Dosage: 160/4.5 MCG TWO FUFFS BID
     Route: 055
     Dates: start: 2010
  10. SYMBICORT [Interacting]
     Indication: CHRONIC OBSTRUCTIVE PULMONARY DISEASE
     Dosage: 160/4.5 MCG TWO FUFFS BID
     Route: 055
     Dates: start: 2010
  11. METOPROLOL TARTRATE [Interacting]
     Indication: CARDIOVASCULAR DISORDER
     Route: 048
     Dates: start: 20110911
  12. METOPROLOL TARTRATE [Interacting]
     Indication: HYPERTENSION
     Route: 048
     Dates: start: 20110911
  13. METOPROLOL TARTRATE [Interacting]
     Indication: CARDIOVASCULAR DISORDER
     Route: 048
  14. METOPROLOL TARTRATE [Interacting]
     Indication: HYPERTENSION
     Route: 048
  15. METOPROLOL TARTRATE [Interacting]
     Indication: CARDIOVASCULAR DISORDER
     Route: 048
  16. METOPROLOL TARTRATE [Interacting]
     Indication: HYPERTENSION
     Route: 048
  17. TOPROL XL [Suspect]
     Route: 048
  18. SPIRIVA [Concomitant]
  19. ALBUTEROL [Concomitant]
     Dosage: 1-2 PUFFS PRN
     Route: 055
  20. ACCUPRIL [Concomitant]
     Indication: HYPERTENSION
     Route: 048
  21. IMDUR [Concomitant]
     Route: 048
  22. OCUPRESS [Concomitant]
  23. CLONAZEPAM [Concomitant]
     Dosage: TWICE A DAY
  24. TRAZADONE [Concomitant]
     Dosage: 150 MG
  25. SERTRALINE [Concomitant]

REACTIONS (19)
  - Drug interaction [Unknown]
  - Pneumothorax [Recovered/Resolved]
  - Malaise [Unknown]
  - Malaise [Unknown]
  - Influenza like illness [Unknown]
  - Drug hypersensitivity [Unknown]
  - Blood pressure fluctuation [Not Recovered/Not Resolved]
  - Dyspnoea [Not Recovered/Not Resolved]
  - Dyspnoea [Not Recovered/Not Resolved]
  - Wheezing [Unknown]
  - Asthma [Not Recovered/Not Resolved]
  - Nausea [Unknown]
  - Dizziness [Unknown]
  - Asthenia [Unknown]
  - Hypoaesthesia [Unknown]
  - Nausea [Unknown]
  - Blood pressure increased [Unknown]
  - Circumstance or information capable of leading to medication error [Unknown]
  - Drug effect incomplete [Unknown]
